FAERS Safety Report 9612655 (Version 1)
Quarter: 2013Q4

REPORT INFORMATION
  Report Type: Spontaneous
  Country: US (occurrence: None)
  Receive Date: 20131008
  Receipt Date: 20131008
  Transmission Date: 20140711
  Serious: Yes (Hospitalization)
  Sender: FDA-Public Use
  Company Number: 1917215

PATIENT
  Age: 68 Year
  Sex: Male

DRUGS (2)
  1. HEPARIN SODIUM [Suspect]
     Indication: HAEMOSTASIS
     Route: 050
     Dates: start: 20130813
  2. PAIN [Concomitant]

REACTIONS (8)
  - Contusion [None]
  - Laceration [None]
  - Extradural haematoma [None]
  - Haematoma [None]
  - Fall [None]
  - Incorrect dose administered [None]
  - Thrombosis [None]
  - Asthenia [None]
